FAERS Safety Report 7515724-7 (Version None)
Quarter: 2011Q2

REPORT INFORMATION
  Report Type: 
  Country: None (occurrence: None)
  Receive Date: 20110601
  Receipt Date: 20100723
  Transmission Date: 20111010
  Serious: No
  Sender: FDA-Public Use
  Company Number: US-PFIZER INC-2010093489

PATIENT
  Sex: Male
  Weight: 72.562 kg

DRUGS (5)
  1. CHANTIX [Suspect]
     Indication: SMOKING CESSATION THERAPY
     Dosage: UNK
     Dates: start: 20100701
  2. LORAZEPAM [Concomitant]
     Indication: ANXIETY
     Dosage: 2 MG, UNK
  3. NORCO [Concomitant]
     Indication: PAIN
     Dosage: 10 MG, UNK
  4. PRISTIQ [Concomitant]
     Indication: DEPRESSION
     Dosage: UNK
  5. SOMA [Concomitant]
     Indication: PAIN
     Dosage: 350 MG, UNK

REACTIONS (2)
  - HYPOAESTHESIA [None]
  - DRUG INEFFECTIVE [None]
